FAERS Safety Report 9241633 (Version 1)
Quarter: 2013Q2

REPORT INFORMATION
  Report Type: Report from Study
  Country: MX (occurrence: MX)
  Receive Date: 20130419
  Receipt Date: 20130419
  Transmission Date: 20140414
  Serious: Yes (Other)
  Sender: FDA-Public Use
  Company Number: PHHY2013MX037847

PATIENT
  Age: 65 Year
  Sex: Female

DRUGS (1)
  1. STALEVO [Suspect]
     Dosage: UNK UKN, UNK
     Route: 048

REACTIONS (2)
  - Dysstasia [Not Recovered/Not Resolved]
  - Accident [Not Recovered/Not Resolved]
